FAERS Safety Report 5458054-X (Version None)
Quarter: 2007Q3

REPORT INFORMATION
  Report Type: 
  Country: None (occurrence: None)
  Receive Date: 20070919
  Receipt Date: 20070910
  Transmission Date: 20080115
  Serious: Yes (Hospitalization, Other)
  Sender: FDA-Public Use
  Company Number: PHEH2007US09738

PATIENT
  Age: 71 Year
  Sex: Female
  Weight: 94.784 kg

DRUGS (6)
  1. ZELNORM [Suspect]
     Indication: IRRITABLE BOWEL SYNDROME
     Dosage: 6MG BID
     Route: 048
     Dates: start: 20050204, end: 20060101
  2. NEXIUM [Concomitant]
     Indication: DYSPEPSIA
     Dosage: 40MG QD
  3. TOPROL-XL [Concomitant]
     Indication: HYPERTENSION
     Dosage: 50MG QD
  4. MOTRIN [Concomitant]
  5. VICODIN [Concomitant]
  6. MUSCLE RELAXANTS [Concomitant]
     Indication: PAIN

REACTIONS (5)
  - CHEST PAIN [None]
  - CORONARY ARTERY DISEASE [None]
  - DYSPNOEA [None]
  - RENAL ARTERY STENOSIS [None]
  - RENAL ARTERY STENT PLACEMENT [None]
